FAERS Safety Report 13333736 (Version 2)
Quarter: 2017Q1

REPORT INFORMATION
  Report Type: Report from Study
  Country: US (occurrence: US)
  Receive Date: 20170314
  Receipt Date: 20170331
  Transmission Date: 20170428
  Serious: Yes (Other)
  Sender: FDA-Public Use
  Company Number: US-AMGEN-USASL2017037349

PATIENT
  Age: 63 Year
  Sex: Female

DRUGS (1)
  1. ENBREL [Suspect]
     Active Substance: ETANERCEPT
     Indication: RHEUMATOID ARTHRITIS
     Dosage: 50 MG, ONCE EVERY WEEK
     Route: 065

REACTIONS (3)
  - Neoplasm malignant [Unknown]
  - Rheumatoid arthritis [Unknown]
  - Grip strength decreased [Unknown]

NARRATIVE: CASE EVENT DATE: 2010
